FAERS Safety Report 18617605 (Version 1)
Quarter: 2020Q4

REPORT INFORMATION
  Report Type: Spontaneous
  Country: US (occurrence: US)
  Receive Date: 20201214
  Receipt Date: 20201214
  Transmission Date: 20210114
  Serious: Yes (Hospitalization)
  Sender: FDA-Public Use
  Company Number: None

PATIENT
  Age: 72 Year
  Sex: Female

DRUGS (13)
  1. FAMOTIDINE. [Concomitant]
     Active Substance: FAMOTIDINE
  2. TRAVOPROST. [Concomitant]
     Active Substance: TRAVOPROST
  3. PIQRAY [Suspect]
     Active Substance: ALPELISIB
     Indication: BREAST CANCER FEMALE
     Route: 048
     Dates: start: 20191118
  4. MEGESTROL [Concomitant]
     Active Substance: MEGESTROL
  5. VITAMIN D [Concomitant]
     Active Substance: VITAMIN D NOS
  6. HYDROCHLOROT [Concomitant]
     Active Substance: HYDROCHLOROTHIAZIDE
  7. TRESIBA FLEX [Concomitant]
  8. FOLIC ACID. [Concomitant]
     Active Substance: FOLIC ACID
  9. SIMBRINZA [Concomitant]
     Active Substance: BRIMONIDINE TARTRATE\BRINZOLAMIDE
  10. FREESTYLE KIT [Concomitant]
  11. BD NEEDLE PEN [Concomitant]
  12. ELIQUIS [Concomitant]
     Active Substance: APIXABAN
  13. FEROSUL [Concomitant]
     Active Substance: FERROUS SULFATE

REACTIONS (1)
  - Intensive care [None]

NARRATIVE: CASE EVENT DATE: 20201211
